FAERS Safety Report 8809864 (Version 2)
Quarter: 2015Q2

REPORT INFORMATION
  Report Type: Report from Study
  Country: US (occurrence: US)
  Receive Date: 20120926
  Receipt Date: 20150626
  Transmission Date: 20150821
  Serious: Yes (Death, Hospitalization)
  Sender: FDA-Public Use
  Company Number: US-ROCHE-1129314

PATIENT
  Sex: Male

DRUGS (21)
  1. TEMODAR [Concomitant]
     Active Substance: TEMOZOLOMIDE
     Route: 065
     Dates: end: 200802
  2. DETRALEX [Concomitant]
     Active Substance: DIOSMIN\HESPERIDIN
  3. REGLAN [Concomitant]
     Active Substance: METOCLOPRAMIDE HYDROCHLORIDE
  4. IRINOTECAN [Concomitant]
     Active Substance: IRINOTECAN
     Route: 065
  5. OMEPRAZOLE. [Concomitant]
     Active Substance: OMEPRAZOLE
     Route: 065
  6. NYSTATIN. [Concomitant]
     Active Substance: NYSTATIN
  7. PAXIL (UNITED STATES) [Concomitant]
     Route: 065
  8. DETROL [Concomitant]
     Active Substance: TOLTERODINE TARTRATE
     Route: 065
  9. AMBIEN [Concomitant]
     Active Substance: ZOLPIDEM TARTRATE
     Route: 065
  10. PEPCID [Concomitant]
     Active Substance: FAMOTIDINE
  11. KEPPRA [Concomitant]
     Active Substance: LEVETIRACETAM
     Route: 065
  12. SYNTHROID [Concomitant]
     Active Substance: LEVOTHYROXINE SODIUM
     Route: 065
  13. NEXIUM [Concomitant]
     Active Substance: ESOMEPRAZOLE MAGNESIUM
  14. ACIPHEX [Concomitant]
     Active Substance: RABEPRAZOLE SODIUM
  15. DECADRON [Concomitant]
     Active Substance: DEXAMETHASONE
     Route: 065
  16. PRILOSEC [Concomitant]
     Active Substance: OMEPRAZOLE MAGNESIUM
  17. DOXYCYCLINE. [Concomitant]
     Active Substance: DOXYCYCLINE
     Indication: BRONCHITIS
  18. LORAZEPAM. [Concomitant]
     Active Substance: LORAZEPAM
  19. ANDROGEL [Concomitant]
     Active Substance: TESTOSTERONE
     Route: 065
  20. AVASTIN [Suspect]
     Active Substance: BEVACIZUMAB
     Indication: BRAIN NEOPLASM MALIGNANT
     Route: 042
  21. DESMOPRESSIN ACETATE. [Concomitant]
     Active Substance: DESMOPRESSIN ACETATE

REACTIONS (12)
  - Gastrointestinal candidiasis [Unknown]
  - Dyspnoea [Unknown]
  - Nausea [Recovered/Resolved]
  - Abdominal pain [Unknown]
  - Abdominal tenderness [Unknown]
  - Dehydration [Recovered/Resolved]
  - Dysphonia [Recovered/Resolved]
  - Death [Fatal]
  - Diabetes insipidus [Unknown]
  - Off label use [Unknown]
  - Vomiting [Not Recovered/Not Resolved]
  - Pruritus [Recovered/Resolved]
